FAERS Safety Report 14966796 (Version 1)
Quarter: 2018Q2

REPORT INFORMATION
  Report Type: Report from Study
  Country: CN (occurrence: CN)
  Receive Date: 20180604
  Receipt Date: 20180604
  Transmission Date: 20180711
  Serious: No
  Sender: FDA-Public Use
  Company Number: CN-CHEPLA-C20170920

PATIENT
  Sex: Female

DRUGS (5)
  1. DIANE (CYPROTERONE ACETATE\ETHINYL ESTRADIOL) [Suspect]
     Active Substance: CYPROTERONE ACETATE\ETHINYL ESTRADIOL
     Indication: POLYCYSTIC OVARIES
     Dosage: ONCE DAILY DURING THE THREE CYCLES AT THE SAME TIME FOR 21 DAYS
     Route: 065
  2. METFORMIN [Suspect]
     Active Substance: METFORMIN HYDROCHLORIDE
     Indication: OVERWEIGHT
     Dosage: DURING THE REMAINING STUDY TIME
     Route: 065
  3. METFORMIN [Suspect]
     Active Substance: METFORMIN HYDROCHLORIDE
     Indication: OVERWEIGHT
     Dosage: DURING FIRST STUDY WEEK
     Route: 065
  4. METFORMIN [Suspect]
     Active Substance: METFORMIN HYDROCHLORIDE
     Indication: OVERWEIGHT
     Dosage: DURING SECOND STUDY WEEK
     Route: 065
  5. ORLISTAT. [Suspect]
     Active Substance: ORLISTAT
     Indication: OVERWEIGHT
     Dosage: APPLICATION BEFORE MEAL
     Route: 065

REACTIONS (4)
  - Rectal discharge [Recovered/Resolved]
  - Nausea [Recovered/Resolved]
  - Flatulence [Recovered/Resolved]
  - Abdominal pain [Recovered/Resolved]
